FAERS Safety Report 14411026 (Version 2)
Quarter: 2018Q1

REPORT INFORMATION
  Report Type: Spontaneous
  Country: US (occurrence: US)
  Receive Date: 20180119
  Receipt Date: 20180224
  Transmission Date: 20180509
  Serious: No
  Sender: FDA-Public Use
  Company Number: US-JNJFOC-20180108541

PATIENT
  Age: 50 Year
  Sex: Female
  Weight: 81.65 kg

DRUGS (2)
  1. TOPIRAMATE. [Suspect]
     Active Substance: TOPIRAMATE
     Indication: SEIZURE
     Route: 048
  2. TOPAMAX [Suspect]
     Active Substance: TOPIRAMATE
     Indication: SEIZURE
     Route: 048

REACTIONS (7)
  - Dizziness [Unknown]
  - Drug dose omission [Unknown]
  - Paraesthesia [Unknown]
  - Hypoaesthesia [Unknown]
  - Malaise [Unknown]
  - Weight decreased [Unknown]
  - Product availability issue [Unknown]

NARRATIVE: CASE EVENT DATE: 20180104
